FAERS Safety Report 9866392 (Version 21)
Quarter: 2016Q4

REPORT INFORMATION
  Report Type: Report from Study
  Country: CA (occurrence: CA)
  Receive Date: 20140203
  Receipt Date: 20161201
  Transmission Date: 20170207
  Serious: Yes (Other)
  Sender: FDA-Public Use
  Company Number: PHHY2011CA84637

PATIENT
  Age: 69 Year
  Sex: Female

DRUGS (9)
  1. SANDOSTATIN LAR DEPOT [Suspect]
     Active Substance: OCTREOTIDE ACETATE
     Dosage: 30 MG, QMO
     Route: 030
     Dates: start: 20111208
  2. SANDOSTATIN LAR DEPOT [Suspect]
     Active Substance: OCTREOTIDE ACETATE
     Dosage: 40 MG, QMO
     Route: 030
     Dates: start: 20160513, end: 20161108
  3. SANDOSTATIN [Suspect]
     Active Substance: OCTREOTIDE ACETATE
     Indication: CARCINOID SYNDROME
     Route: 058
     Dates: start: 2011, end: 20110603
  4. SANDOSTATIN LAR DEPOT [Suspect]
     Active Substance: OCTREOTIDE ACETATE
     Indication: CARCINOID TUMOUR
     Dosage: 30 MG, QMO
     Route: 030
     Dates: start: 20110610
  5. SANDOSTATIN LAR DEPOT [Suspect]
     Active Substance: OCTREOTIDE ACETATE
     Dosage: 30 MG, QMO
     Route: 030
     Dates: start: 20131227
  6. SANDOSTATIN LAR DEPOT [Suspect]
     Active Substance: OCTREOTIDE ACETATE
     Dosage: 30 MG, QMO
     Route: 030
     Dates: start: 20140217
  7. SANDOSTATIN LAR DEPOT [Suspect]
     Active Substance: OCTREOTIDE ACETATE
     Dosage: 40 MG, QMO
     Route: 030
     Dates: start: 20110908
  8. OCTREOTIDE. [Suspect]
     Active Substance: OCTREOTIDE
     Indication: CARCINOID TUMOUR
     Dosage: UNK UNK, TID
     Route: 065
     Dates: start: 20101217
  9. PREMARIN [Concomitant]
     Active Substance: ESTROGENS, CONJUGATED
     Indication: PRODUCT USED FOR UNKNOWN INDICATION
     Route: 065

REACTIONS (32)
  - Metastases to liver [Recovering/Resolving]
  - Myalgia [Unknown]
  - Flushing [Unknown]
  - Musculoskeletal pain [Unknown]
  - Body temperature decreased [Unknown]
  - Diarrhoea [Not Recovered/Not Resolved]
  - Gait disturbance [Unknown]
  - Sleep disorder due to general medical condition, insomnia type [Unknown]
  - Injection site swelling [Unknown]
  - Injection site discomfort [Unknown]
  - Metastasis [Unknown]
  - Malignant neoplasm progression [Unknown]
  - Muscle swelling [Unknown]
  - Blood pressure increased [Unknown]
  - Blood pressure systolic increased [Unknown]
  - Blood pressure diastolic increased [Unknown]
  - Dysphonia [Unknown]
  - Sciatica [Unknown]
  - Paraesthesia [Unknown]
  - Injection site discomfort [Recovered/Resolved]
  - Foot fracture [Unknown]
  - Insomnia [Unknown]
  - Abdominal pain [Unknown]
  - Injection site pain [Recovering/Resolving]
  - Malaise [Unknown]
  - Stress [Unknown]
  - Myositis [Unknown]
  - Fatigue [Unknown]
  - Burning sensation [Unknown]
  - Nasopharyngitis [Unknown]
  - Limb discomfort [Not Recovered/Not Resolved]
  - Abdominal distension [Unknown]

NARRATIVE: CASE EVENT DATE: 201109
